FAERS Safety Report 14958001 (Version 1)
Quarter: 2018Q2

REPORT INFORMATION
  Report Type: Spontaneous
  Country: CN (occurrence: CN)
  Receive Date: 20180531
  Receipt Date: 20180531
  Transmission Date: 20180711
  Serious: Yes (Other)
  Sender: FDA-Public Use
  Company Number: CN-PFIZER INC-2018221313

PATIENT
  Age: 2 Year
  Sex: Female
  Weight: 17 kg

DRUGS (1)
  1. ZITHROMAX [Suspect]
     Active Substance: AZITHROMYCIN DIHYDRATE
     Indication: PNEUMONIA
     Dosage: 0.15 G, 3X/DAY
     Route: 048
     Dates: start: 20180414, end: 20180414

REACTIONS (3)
  - Electrocardiogram Q wave abnormal [Recovering/Resolving]
  - Inappropriate schedule of drug administration [Unknown]
  - Extrasystoles [Recovering/Resolving]

NARRATIVE: CASE EVENT DATE: 20180414
